FAERS Safety Report 9670150 (Version 1)
Quarter: 2013Q4

REPORT INFORMATION
  Report Type: Spontaneous
  Country: GB (occurrence: GB)
  Receive Date: 20131105
  Receipt Date: 20131105
  Transmission Date: 20140711
  Serious: Yes (Hospitalization, Other)
  Sender: FDA-Public Use
  Company Number: GB-ELI_LILLY_AND_COMPANY-GB201310008132

PATIENT
  Age: 61 Year
  Sex: Female

DRUGS (2)
  1. HUMALOG LISPRO [Suspect]
     Indication: DIABETES MELLITUS
     Dosage: UNK, QID
     Route: 065
  2. LANTUS [Concomitant]
     Dosage: UNK, EACH EVENING

REACTIONS (4)
  - Malaise [Unknown]
  - Epilepsy [Not Recovered/Not Resolved]
  - Blood glucose fluctuation [Unknown]
  - Memory impairment [Unknown]
